FAERS Safety Report 9248587 (Version 1)
Quarter: 2013Q2

REPORT INFORMATION
  Report Type: Report from Study
  Country: CA (occurrence: CA)
  Receive Date: 20130423
  Receipt Date: 20130423
  Transmission Date: 20140414
  Serious: Yes (Other)
  Sender: FDA-Public Use
  Company Number: CA-ROCHE-1195025

PATIENT
  Age: 47 Year
  Sex: Female
  Weight: 67.4 kg

DRUGS (7)
  1. RITUXAN [Suspect]
     Indication: WARM TYPE HAEMOLYTIC ANAEMIA
     Route: 042
     Dates: start: 20120904, end: 20130219
  2. RITUXAN [Suspect]
     Indication: OFF LABEL USE
  3. PREDNISONE [Concomitant]
  4. PENTAMIDINE [Concomitant]
  5. FLUCONAZOLE [Concomitant]
  6. ACTONEL [Concomitant]
  7. FOLIC ACID [Concomitant]

REACTIONS (2)
  - Drug ineffective [Unknown]
  - Haemolysis [Not Recovered/Not Resolved]
